FAERS Safety Report 6567878-7 (Version None)
Quarter: 2010Q1

REPORT INFORMATION
  Report Type: 
  Country: None (occurrence: None)
  Receive Date: 20100203
  Receipt Date: 20100121
  Transmission Date: 20100710
  Serious: Yes (Hospitalization)
  Sender: FDA-Public Use
  Company Number: PHHY2010FR04084

PATIENT
  Sex: Male

DRUGS (12)
  1. TASIGNA [Suspect]
     Dosage: 800 MG/DAY
     Dates: start: 20090311
  2. POTASSIUM CHLORIDE [Concomitant]
     Indication: HYPOKALAEMIA
     Dosage: 1200 MG DAILY
     Dates: start: 20000601
  3. KARDEGIC [Concomitant]
     Dosage: 75 MG DAILY
     Dates: start: 20090601
  4. TAHOR [Concomitant]
     Indication: HYPERCHOLESTEROLAEMIA
     Dosage: 40 MG DAILY
     Dates: start: 20090601
  5. ESOMEPRAZOLE [Concomitant]
     Indication: GASTROOESOPHAGEAL REFLUX DISEASE
     Dosage: 20 MG DAILY
     Dates: start: 20090602
  6. FORLAX [Concomitant]
     Indication: CONSTIPATION
     Dosage: 2 DF, UNK
     Dates: start: 20090601
  7. NEURONTIN [Concomitant]
     Indication: CONVULSION
     Dosage: 1200 MG DAILY
     Dates: start: 20070101
  8. CARDENSIEL [Concomitant]
     Indication: CARDIAC FAILURE
     Dosage: 2.5 MG DAILY
     Dates: start: 20090601
  9. TARDYFERON [Concomitant]
     Indication: IRON DEFICIENCY
     Dosage: UNK
     Dates: start: 20090601
  10. TEMESTA [Concomitant]
     Indication: ANXIETY
     Dosage: 1 MG IF NECESSARY
     Dates: start: 20090601
  11. LASILIX [Concomitant]
     Indication: PULMONARY OEDEMA
     Dosage: 40 MG, UNK
     Dates: start: 20090601
  12. LOVENOX [Concomitant]
     Indication: THROMBOSIS
     Dosage: 4000 IU, UNK
     Dates: start: 20090601

REACTIONS (3)
  - CHEST PAIN [None]
  - CORONARY ARTERY BYPASS [None]
  - MYOCARDIAL ISCHAEMIA [None]
